FAERS Safety Report 7708404-6 (Version None)
Quarter: 2011Q3

REPORT INFORMATION
  Report Type: 
  Country: None (occurrence: None)
  Receive Date: 20110825
  Receipt Date: 20110816
  Transmission Date: 20111222
  Serious: Yes (Death, Hospitalization, Other)
  Sender: FDA-Public Use
  Company Number: FR-ELI_LILLY_AND_COMPANY-FR201008008698

PATIENT
  Age: 50 Year
  Sex: Female

DRUGS (5)
  1. OLANZAPINE [Suspect]
     Dosage: 405 MG, EVERY 15 DAYS
     Route: 030
     Dates: start: 20100701
  2. ZYPREXA [Suspect]
     Dosage: 40 MG, DAILY (1/D)
     Route: 048
     Dates: end: 20100601
  3. LORAZEPAM [Concomitant]
     Dosage: UNK, UNKNOWN
     Route: 048
  4. TRIMEPRAZINE TARTRATE [Concomitant]
     Dosage: UNK, UNKNOWN
     Route: 048
  5. OLANZAPINE [Suspect]
     Dosage: 300 MG, EVERY 15 DAYS
     Route: 030
     Dates: start: 20100601, end: 20100601

REACTIONS (7)
  - PULMONARY EMBOLISM [None]
  - DRUG INEFFECTIVE [None]
  - BLOOD PRESSURE SYSTOLIC INCREASED [None]
  - OVERDOSE [None]
  - MAJOR DEPRESSION [None]
  - SEDATION [None]
  - CONFUSIONAL STATE [None]
